FAERS Safety Report 15395817 (Version 1)
Quarter: 2018Q3

REPORT INFORMATION
  Report Type: Spontaneous
  Country: US (occurrence: US)
  Receive Date: 20180918
  Receipt Date: 20180918
  Transmission Date: 20181010
  Serious: No
  Sender: FDA-Public Use
  Company Number: US-JNJFOC-20180907076

PATIENT
  Sex: Female

DRUGS (1)
  1. ORTHO TRI CYCLEN LO [Suspect]
     Active Substance: ETHINYL ESTRADIOL\NORGESTIMATE
     Indication: SKIN DISORDER
     Dosage: STARTED TWO AND HALF MAY BE THREE YEARS AGO
     Route: 048

REACTIONS (3)
  - Irritable bowel syndrome [Unknown]
  - Scoliosis [Unknown]
  - Fibromyalgia [Unknown]
